FAERS Safety Report 20417040 (Version 1)
Quarter: 2022Q1

REPORT INFORMATION
  Report Type: Spontaneous
  Country: FR (occurrence: FR)
  Receive Date: 20220202
  Receipt Date: 20220202
  Transmission Date: 20220423
  Serious: Yes (Death)
  Sender: FDA-Public Use
  Company Number: FR-PFIZER INC-202200148964

PATIENT
  Age: 54 Year
  Sex: Male

DRUGS (2)
  1. RITUXIMAB [Suspect]
     Active Substance: RITUXIMAB
     Indication: Squamous cell carcinoma of lung
     Dosage: 1000 MG
  2. SARGRAMOSTIM [Suspect]
     Active Substance: SARGRAMOSTIM
     Indication: Squamous cell carcinoma of lung
     Dosage: 250 UG, DAILY

REACTIONS (3)
  - Drug ineffective for unapproved indication [Fatal]
  - Metastatic squamous cell carcinoma [Fatal]
  - Off label use [Unknown]
